FAERS Safety Report 7577171-1 (Version None)
Quarter: 2011Q2

REPORT INFORMATION
  Report Type: 
  Country: None (occurrence: None)
  Receive Date: 20110628
  Receipt Date: 20090602
  Transmission Date: 20111010
  Serious: No
  Sender: FDA-Public Use
  Company Number: US-PFIZER INC-US-WYE-H09600709

PATIENT
  Age: 45 Year
  Sex: Male

DRUGS (1)
  1. ADVIL LIQUI-GELS [Suspect]

REACTIONS (1)
  - DRUG INEFFECTIVE [None]
